FAERS Safety Report 21411183 (Version 2)
Quarter: 2022Q4

REPORT INFORMATION
  Report Type: Spontaneous
  Country: US (occurrence: US)
  Receive Date: 20221005
  Receipt Date: 20221109
  Transmission Date: 20230113
  Serious: No
  Sender: FDA-Public Use
  Company Number: US-PFIZER INC-202201195543

PATIENT
  Age: 65 Year
  Sex: Male

DRUGS (1)
  1. NICOTROL [Suspect]
     Active Substance: NICOTINE
     Dosage: 10 MG

REACTIONS (3)
  - Product quality issue [Unknown]
  - Poor quality product administered [Unknown]
  - Visual impairment [Unknown]
